FAERS Safety Report 8058997-7 (Version None)
Quarter: 2012Q1

REPORT INFORMATION
  Report Type: 
  Country: None (occurrence: None)
  Receive Date: 20120120
  Receipt Date: 20101220
  Transmission Date: 20120608
  Serious: No
  Sender: FDA-Public Use
  Company Number: US-BAUSCH-2010BL007217

PATIENT
  Age: 71 Year
  Sex: Male

DRUGS (2)
  1. ALAWAY [Suspect]
     Indication: OFF LABEL USE
     Route: 047
     Dates: start: 20101220, end: 20101220
  2. ALAWAY [Suspect]
     Indication: EYE INFLAMMATION
     Route: 047
     Dates: start: 20101220, end: 20101220

REACTIONS (1)
  - ABNORMAL SENSATION IN EYE [None]
